FAERS Safety Report 8243062 (Version 5)
Quarter: 2015Q4

REPORT INFORMATION
  Report Type: Report from Study
  Country: US (occurrence: US)
  Receive Date: 20111114
  Receipt Date: 20151224
  Transmission Date: 20160305
  Serious: Yes (Hospitalization, Other)
  Sender: FDA-Public Use
  Company Number: US-AMGEN-USASP2011058241

PATIENT
  Age: 59 Year
  Sex: Female

DRUGS (3)
  1. ENBREL [Suspect]
     Active Substance: ETANERCEPT
     Indication: RHEUMATOID ARTHRITIS
     Dosage: 50 MG, QWK
     Route: 065
     Dates: start: 19981116
  2. ENBREL [Suspect]
     Active Substance: ETANERCEPT
     Dosage: UNK
     Route: 065
  3. METHOTREXATE [Suspect]
     Active Substance: METHOTREXATE
     Indication: PRODUCT USED FOR UNKNOWN INDICATION
     Dosage: 3 CC INJECTION, QWK
     Route: 065

REACTIONS (17)
  - Uterine leiomyoma [Not Recovered/Not Resolved]
  - Endometrial thickening [Recovered/Resolved]
  - Vomiting [Recovered/Resolved]
  - Rheumatoid arthritis [Recovered/Resolved]
  - Neck pain [Recovered/Resolved]
  - Pain [Recovered/Resolved]
  - Fine motor skill dysfunction [Recovered/Resolved]
  - Injection site erythema [Not Recovered/Not Resolved]
  - Nausea [Recovered/Resolved]
  - Injection site pain [Not Recovered/Not Resolved]
  - Dyspareunia [Not Recovered/Not Resolved]
  - Contusion [Not Recovered/Not Resolved]
  - Rectocele repair [Unknown]
  - Musculoskeletal pain [Recovered/Resolved]
  - Gastrooesophageal reflux disease [Recovered/Resolved]
  - Fatigue [Recovered/Resolved]
  - Endoscopy [Unknown]

NARRATIVE: CASE EVENT DATE: 2011
